FAERS Safety Report 8303629-3 (Version None)
Quarter: 2012Q2

REPORT INFORMATION
  Report Type: 
  Country: None (occurrence: None)
  Receive Date: 20120418
  Receipt Date: 20120405
  Transmission Date: 20120825
  Serious: Yes (Hospitalization)
  Sender: FDA-Public Use
  Company Number: 2012SP018950

PATIENT
  Age: 16 Year
  Sex: Female

DRUGS (8)
  1. BISACODYL [Suspect]
     Indication: PRODUCT USED FOR UNKNOWN INDICATION
     Dosage: UNK;UNK
     Dates: start: 20120122, end: 20120122
  2. REMERON [Suspect]
     Indication: PRODUCT USED FOR UNKNOWN INDICATION
     Dosage: 10 DF;ONCE;PO
     Route: 048
     Dates: start: 20120122, end: 20120122
  3. MEFENAMIC ACID [Suspect]
     Indication: PRODUCT USED FOR UNKNOWN INDICATION
     Dosage: UNK;UNK
     Dates: start: 20120122, end: 20120122
  4. PREGABALIN [Suspect]
     Indication: PRODUCT USED FOR UNKNOWN INDICATION
     Dosage: UNK;UNK
     Dates: start: 20120122, end: 20120122
  5. ETODOLAC [Suspect]
     Indication: PRODUCT USED FOR UNKNOWN INDICATION
     Dosage: UNK;UNK
     Dates: start: 20120122, end: 20120122
  6. BUPROPION HCL [Suspect]
     Indication: PRODUCT USED FOR UNKNOWN INDICATION
     Dosage: 6 DF;ONCE;PO
     Route: 048
     Dates: start: 20120122, end: 20120122
  7. TRAZODONE HCL [Suspect]
     Indication: PRODUCT USED FOR UNKNOWN INDICATION
     Dosage: 60 DF;ONCE;PO, 18 DF;ONCE;PO
     Route: 048
     Dates: start: 20120122, end: 20120122
  8. TRAZODONE HCL [Suspect]
     Indication: PRODUCT USED FOR UNKNOWN INDICATION
     Dosage: 60 DF;ONCE;PO, 18 DF;ONCE;PO
     Route: 048
     Dates: start: 20120122, end: 20120122

REACTIONS (15)
  - TREMOR [None]
  - HYPERTONIA [None]
  - EPILEPSY [None]
  - COMA [None]
  - DRUG ADMINISTERED TO PATIENT OF INAPPROPRIATE AGE [None]
  - EXTRAPYRAMIDAL DISORDER [None]
  - HYPOCALCAEMIA [None]
  - SUICIDE ATTEMPT [None]
  - HYPOKALAEMIA [None]
  - MULTIPLE DRUG OVERDOSE [None]
  - VOMITING [None]
  - DYSKINESIA [None]
  - MYDRIASIS [None]
  - HEPATIC ENZYME INCREASED [None]
  - POISONING [None]
